FAERS Safety Report 15675995 (Version 2)
Quarter: 2018Q4

REPORT INFORMATION
  Report Type: Spontaneous
  Country: US (occurrence: US)
  Receive Date: 20181130
  Receipt Date: 20181130
  Transmission Date: 20190205
  Serious: No
  Sender: FDA-Public Use
  Company Number: US-PFIZER INC-2018482829

PATIENT
  Age: 54 Year
  Sex: Female

DRUGS (3)
  1. METHOTREXATE SODIUM. [Suspect]
     Active Substance: METHOTREXATE SODIUM
     Dosage: 25 MG/ML, INJECT 1 CC ONCE A WEEK
     Route: 058
     Dates: start: 201301, end: 201310
  2. METHOTREXATE SODIUM. [Suspect]
     Active Substance: METHOTREXATE SODIUM
     Dosage: 25 MG/ML INJECTION SOLUTION, INJECT 1CC, ONCE A WEEK
     Route: 058
     Dates: start: 20180628
  3. METHOTREXATE SODIUM. [Suspect]
     Active Substance: METHOTREXATE SODIUM
     Dosage: 17.5 MG
     Route: 058

REACTIONS (2)
  - Influenza like illness [Unknown]
  - Nausea [Unknown]
